FAERS Safety Report 14199822 (Version 1)
Quarter: 2017Q4

REPORT INFORMATION
  Report Type: Spontaneous
  Country: FI (occurrence: FI)
  Receive Date: 20171117
  Receipt Date: 20171117
  Transmission Date: 20180321
  Serious: Yes (Other)
  Sender: FDA-Public Use
  Company Number: FI-JNJFOC-20171119538

PATIENT
  Age: 89 Year
  Sex: Male

DRUGS (4)
  1. XARELTO [Suspect]
     Active Substance: RIVAROXABAN
     Indication: ATRIAL FIBRILLATION
     Route: 048
  2. LIPCUT [Concomitant]
     Active Substance: SIMVASTATIN
     Route: 065
  3. SIFROL [Concomitant]
     Active Substance: PRAMIPEXOLE
     Route: 065
  4. ENALAPRIL W/LERCANIDIPINE [Concomitant]
     Route: 065

REACTIONS (3)
  - Chest pain [Unknown]
  - Acute myocardial infarction [Unknown]
  - Chest discomfort [Unknown]

NARRATIVE: CASE EVENT DATE: 201707
